FAERS Safety Report 6101491-0 (Version None)
Quarter: 2009Q1

REPORT INFORMATION
  Report Type: 
  Country: None (occurrence: None)
  Receive Date: 20090227
  Receipt Date: 20090217
  Transmission Date: 20090719
  Serious: Yes (Other)
  Sender: FDA-Public Use
  Company Number: 2009US000442

PATIENT
  Sex: 0

DRUGS (2)
  1. PROGRAF [Suspect]
     Indication: RENAL TRANSPLANT
     Dosage: 0.1 MG/KG, BID
  2. MYCOPHENOLATE MOFETIL [Concomitant]

REACTIONS (3)
  - DISEASE RECURRENCE [None]
  - GLOMERULONEPHRITIS MEMBRANOPROLIFERATIVE [None]
  - TRANSPLANT FAILURE [None]
